FAERS Safety Report 10896612 (Version 1)
Quarter: 2015Q1

REPORT INFORMATION
  Report Type: Spontaneous
  Country: None (occurrence: None)
  Receive Date: 20150302
  Receipt Date: 20150302
  Transmission Date: 20150721
  Serious: Yes (Other)
  Sender: FDA-Public Use
  Company Number: NL-SEPTODONT-201502601

PATIENT
  Age: 14 Year
  Sex: Female

DRUGS (1)
  1. SEPTANEST [Suspect]
     Active Substance: ARTICAINE HYDROCHLORIDE\EPINEPHRINE BITARTRATE
     Indication: LOCAL ANAESTHESIA
     Dosage: 2 DF TOTAL
     Route: 004
     Dates: start: 20150211

REACTIONS (5)
  - Agitation [None]
  - Pain [None]
  - Dizziness [None]
  - Disorientation [None]
  - Anxiety [None]

NARRATIVE: CASE EVENT DATE: 20150211
